FAERS Safety Report 9891554 (Version 1)
Quarter: 2014Q1

REPORT INFORMATION
  Report Type: Spontaneous
  Country: DZ (occurrence: DZ)
  Receive Date: 20140212
  Receipt Date: 20140212
  Transmission Date: 20141002
  Serious: Yes (Death)
  Sender: FDA-Public Use
  Company Number: PHHY2014DZ016762

PATIENT
  Age: 52 Year
  Sex: Female

DRUGS (5)
  1. ZOMETA [Suspect]
     Indication: METASTASES TO BONE
     Dosage: PER CURE 1 BOTTLE
     Route: 042
     Dates: start: 20101124
  2. FEMARA [Suspect]
     Dosage: 1 DF, DAILY
     Route: 048
     Dates: start: 20101124, end: 20101208
  3. TRASTUZUMAB [Suspect]
     Indication: BREAST CANCER METASTATIC
     Dosage: 8 MG, PER KG PER CURE
     Route: 042
     Dates: start: 20101124, end: 20101124
  4. SKENAN [Suspect]
     Indication: PAIN
     Dosage: 30 MG,DAILY
     Route: 048
     Dates: start: 20101124, end: 20101208
  5. SOLU MEDROL [Suspect]
     Indication: DYSPNOEA
     Dosage: UNK UKN, UNK
     Route: 042
     Dates: start: 20101208

REACTIONS (5)
  - Respiratory failure [Fatal]
  - Dyspnoea at rest [Fatal]
  - General physical health deterioration [Fatal]
  - Breast cancer metastatic [Fatal]
  - Malignant neoplasm progression [Fatal]
